FAERS Safety Report 7548382-6 (Version None)
Quarter: 2011Q2

REPORT INFORMATION
  Report Type: 
  Country: None (occurrence: None)
  Receive Date: 20110608
  Receipt Date: 20110525
  Transmission Date: 20111010
  Serious: Yes (Hospitalization)
  Sender: FDA-Public Use
  Company Number: DSJ-2011-05737

PATIENT
  Sex: Male

DRUGS (3)
  1. BENICAR [Suspect]
     Indication: HYPERTENSION
     Dosage: 20 MG (20 MG,1 IN  1 D),PER ORAL;  40 MG (40 MG, 1 IN 1 D),PER ORAL
     Route: 048
     Dates: end: 20110301
  2. BENICAR [Suspect]
     Indication: HYPERTENSION
     Dosage: 20 MG (20 MG,1 IN  1 D),PER ORAL;  40 MG (40 MG, 1 IN 1 D),PER ORAL
     Route: 048
     Dates: start: 20110301
  3. MEDICINE FOR HYPERCHOLETEROLEMIA [Concomitant]

REACTIONS (3)
  - THYROIDECTOMY [None]
  - HYPERCHOLESTEROLAEMIA [None]
  - DRUG INEFFECTIVE [None]
